FAERS Safety Report 7126524-4 (Version None)
Quarter: 2010Q4

REPORT INFORMATION
  Report Type: 
  Country: None (occurrence: None)
  Receive Date: 20101129
  Receipt Date: 20101118
  Transmission Date: 20110411
  Serious: Yes (Hospitalization)
  Sender: FDA-Public Use
  Company Number: US-ROCHE-743621

PATIENT
  Sex: Female
  Weight: 70.8 kg

DRUGS (12)
  1. BEVACIZUMAB [Suspect]
     Dosage: TOTAL 4 DOSES.
     Route: 042
     Dates: start: 20100708, end: 20100719
  2. GEMCITABINE [Suspect]
     Dosage: TOTAL 3 DOSES.
     Route: 042
     Dates: start: 20100708, end: 20100805
  3. CREON [Concomitant]
     Dates: start: 20100630
  4. PROTONIX [Concomitant]
     Dates: start: 20100702
  5. CALCIUM [Concomitant]
     Dates: start: 20100630
  6. VITAMINE D [Concomitant]
     Dates: start: 20100630
  7. PHENAZOPYRIDINE HCL TAB [Concomitant]
     Dates: start: 20100819, end: 20100822
  8. ESTROGEN [Concomitant]
     Dosage: ESTROGEN RING
     Dates: start: 20100630
  9. COMPAZINE [Concomitant]
     Dates: start: 20100708
  10. XANAX [Concomitant]
     Dates: start: 20100722
  11. CIPRO [Concomitant]
     Dates: start: 20100819, end: 20100829
  12. BENADRYL [Concomitant]
     Dosage: BENADRYL OINTMENT.
     Dates: start: 20100723

REACTIONS (1)
  - SMALL INTESTINAL OBSTRUCTION [None]
